FAERS Safety Report 12101555 (Version 2)
Quarter: 2016Q1

REPORT INFORMATION
  Report Type: Spontaneous
  Country: FR (occurrence: FR)
  Receive Date: 20160222
  Receipt Date: 20160311
  Transmission Date: 20160526
  Serious: Yes (Life-Threatening, Other)
  Sender: FDA-Public Use
  Company Number: FR-GLAXOSMITHKLINE-FR2016GSK022597

PATIENT
  Age: 10 Year
  Sex: Male

DRUGS (21)
  1. COVERSYL [Concomitant]
     Active Substance: PERINDOPRIL
     Indication: ACUTE LYMPHOCYTIC LEUKAEMIA
     Dosage: UNK
  2. COLIMYCINE [Concomitant]
     Active Substance: COLISTIMETHATE SODIUM
     Dosage: UNK
     Dates: start: 20160122
  3. FUNGIZONE [Concomitant]
     Active Substance: AMPHOTERICIN B
     Dosage: UNK
     Dates: start: 20160122
  4. LAROXYL [Suspect]
     Active Substance: AMITRIPTYLINE
     Indication: PRODUCT USED FOR UNKNOWN INDICATION
     Dosage: UNK
     Dates: start: 20160131, end: 20160205
  5. TRIFLUCAN [Concomitant]
     Active Substance: FLUCONAZOLE
     Dosage: UNK
     Dates: start: 20160122
  6. FORTUM [Concomitant]
     Active Substance: CEFTAZIDIME
     Dosage: UNK
     Dates: start: 20160124, end: 20160210
  7. NETILMICINE [Concomitant]
     Active Substance: NETILMICIN
     Dosage: UNK
     Route: 042
     Dates: start: 20160122
  8. CLAIRYG [Suspect]
     Active Substance: HUMAN IMMUNOGLOBULIN G
     Indication: PRODUCT USED FOR UNKNOWN INDICATION
     Dosage: 10 MCI, SINGLE
     Dates: start: 20160122, end: 20160122
  9. INEXIUM [Concomitant]
     Active Substance: ESOMEPRAZOLE
     Dosage: UNK
     Dates: start: 20160130
  10. AMBISOME [Concomitant]
     Active Substance: AMPHOTERICIN B
     Dosage: UNK
     Dates: start: 20160201, end: 20160210
  11. AMIKACINE MYLAN [Concomitant]
     Active Substance: AMIKACIN
     Dosage: UNK
     Dates: start: 20160204, end: 20160207
  12. ZOPHREN [Suspect]
     Active Substance: ONDANSETRON
     Indication: PRODUCT USED FOR UNKNOWN INDICATION
     Dosage: UNK
     Dates: start: 20160130, end: 20160205
  13. URSODEOXYCHOLIC ACID [Concomitant]
     Active Substance: URSODIOL
     Indication: PRODUCT USED FOR UNKNOWN INDICATION
     Dosage: UNK
     Route: 048
     Dates: start: 20160122
  14. LOVENOX [Concomitant]
     Active Substance: ENOXAPARIN SODIUM
     Dosage: UNK
     Route: 058
     Dates: start: 20160122
  15. CIFLOX [Concomitant]
     Active Substance: CIPROFLOXACIN
     Dosage: UNK
     Dates: start: 20160203, end: 20160210
  16. CHOLURSO [Concomitant]
     Active Substance: URSODIOL
     Dosage: UNK
     Route: 048
     Dates: start: 20160122
  17. CICLOSPORINE [Concomitant]
     Active Substance: CYCLOSPORINE
     Dosage: UNK
     Dates: start: 20160130
  18. KEFORAL [Concomitant]
     Active Substance: CEFAMANDOLE
     Dosage: UNK
     Dates: start: 20160122
  19. TARGOCID [Concomitant]
     Active Substance: TEICOPLANIN
     Dosage: UNK
     Route: 042
     Dates: start: 20160129, end: 20160210
  20. ZOVIRAX [Suspect]
     Active Substance: ACYCLOVIR
     Indication: PRODUCT USED FOR UNKNOWN INDICATION
     Dosage: UNK
     Dates: start: 20160122, end: 20160205
  21. AMIKACIN [Concomitant]
     Active Substance: AMIKACIN
     Dosage: UNK
     Dates: start: 20160204

REACTIONS (1)
  - Stevens-Johnson syndrome [Not Recovered/Not Resolved]

NARRATIVE: CASE EVENT DATE: 20160204
